FAERS Safety Report 4865847-6 (Version None)
Quarter: 2005Q4

REPORT INFORMATION
  Report Type: 
  Country: None (occurrence: None)
  Receive Date: 20051220
  Receipt Date: 20051207
  Transmission Date: 20060501
  Serious: Yes (Other)
  Sender: FDA-Public Use
  Company Number: 2005165793

PATIENT
  Age: 58 Year
  Weight: 114 kg

DRUGS (10)
  1. ATORVASTATIN CALCIUM [Suspect]
     Indication: BLOOD CHOLESTEROL INCREASED
     Dosage: 10 MG (10 MG, 1 IN 1 D), ORAL
     Route: 048
     Dates: start: 20051018
  2. ZOPICLONE (ZIPICLONE) [Suspect]
     Indication: DIABETES MELLITUS
  3. NOVORAPID (INSULIN ASPART) [Concomitant]
  4. LISINOPRIL [Concomitant]
  5. OMEPRAZOLE [Concomitant]
  6. GABAPENTIN [Concomitant]
  7. LANTUS [Concomitant]
  8. FELDENE [Concomitant]
  9. LACIDIPINE (LACIFIPINE) [Concomitant]
  10. BENDROFLUAZIDE (BENDROFLUMETHIAZIDE) [Concomitant]

REACTIONS (2)
  - DRUG EFFECT DECREASED [None]
  - DRUG INTERACTION [None]
